FAERS Safety Report 16961171 (Version 1)
Quarter: 2019Q4

REPORT INFORMATION
  Report Type: Spontaneous
  Country: DE (occurrence: DE)
  Receive Date: 20191025
  Receipt Date: 20191025
  Transmission Date: 20200122
  Serious: Yes (Death, Hospitalization)
  Sender: FDA-Public Use
  Company Number: DE-DRREDDYS-GER/GER/19/0115505

PATIENT
  Age: 81 Year
  Sex: Male
  Weight: 74 kg

DRUGS (5)
  1. TERBINAFINE. [Suspect]
     Active Substance: TERBINAFINE
     Indication: ONYCHOMYCOSIS
     Dosage: DAILY DOSE: 250 MG MILLGRAM(S) EVERY DAYS
     Route: 048
     Dates: start: 20180806
  2. ALFUZOSIN [Concomitant]
     Active Substance: ALFUZOSIN
     Indication: BENIGN PROSTATIC HYPERPLASIA
     Dosage: DAILY DOSE: 10 MG MILLGRAM(S) EVERY DAYS
     Route: 048
     Dates: start: 201707
  3. XARELTO [Suspect]
     Active Substance: RIVAROXABAN
     Indication: ATRIAL FIBRILLATION
     Dosage: DAILY DOSE: 20 MG MILLGRAM(S) EVERY DAYS
     Route: 048
     Dates: start: 201806
  4. METOPROLOL. [Concomitant]
     Active Substance: METOPROLOL
     Indication: HYPERTENSION
     Dosage: DAILY DOSE: 47.5 MG MILLGRAM(S) EVERY DAYS
     Route: 048
     Dates: start: 201706
  5. RAMIPRIL. [Concomitant]
     Active Substance: RAMIPRIL
     Indication: HYPERTENSION
     Dosage: DAILY DOSE: 2.5 MG MILLGRAM(S) EVERY DAYS
     Route: 048
     Dates: start: 201806

REACTIONS (3)
  - Cerebral haemorrhage [Fatal]
  - Pneumonia aspiration [Fatal]
  - Status epilepticus [Fatal]

NARRATIVE: CASE EVENT DATE: 20181006
